FAERS Safety Report 8451178-4 (Version None)
Quarter: 2012Q2

REPORT INFORMATION
  Report Type: 
  Country: None (occurrence: None)
  Receive Date: 20120620
  Receipt Date: 20120306
  Transmission Date: 20120825
  Serious: No
  Sender: FDA-Public Use
  Company Number: US-VERTEX PHARMACEUTICALS INC.-AE-2011-003249

PATIENT
  Sex: Male
  Weight: 65.83 kg

DRUGS (8)
  1. TRIAMCINOLONE [Concomitant]
     Route: 061
  2. INCIVEK [Suspect]
     Indication: HEPATITIS C
     Route: 048
     Dates: start: 20111016
  3. SULFA METH [Concomitant]
     Route: 061
  4. TRAMADOL HCL [Concomitant]
     Route: 048
  5. PEGINTERFERON ALFA-2A [Concomitant]
     Indication: HEPATITIS C
     Route: 058
     Dates: start: 20111016
  6. FUROSEMIDE [Concomitant]
     Route: 048
  7. SPIRONOLACTONE [Concomitant]
     Route: 048
  8. RIBAVIRIN [Concomitant]
     Indication: HEPATITIS C
     Route: 048
     Dates: start: 20111016

REACTIONS (3)
  - RASH GENERALISED [None]
  - PRURITUS [None]
  - INSOMNIA [None]
